FAERS Safety Report 21314347 (Version 1)
Quarter: 2022Q3

REPORT INFORMATION
  Report Type: Report from Study
  Country: CO (occurrence: CO)
  Receive Date: 20220909
  Receipt Date: 20220909
  Transmission Date: 20221027
  Serious: Yes (Other)
  Sender: FDA-Public Use
  Company Number: CO-JNJFOC-20220911023

PATIENT
  Age: 47 Year
  Sex: Female
  Weight: 58 kg

DRUGS (1)
  1. SIMPONI [Suspect]
     Active Substance: GOLIMUMAB
     Indication: Rheumatoid arthritis
     Dosage: LATE DOSE OF APPLICATION ON 06-APR-2022
     Route: 058
     Dates: start: 20180118

REACTIONS (1)
  - Eye infection toxoplasmal [Recovering/Resolving]

NARRATIVE: CASE EVENT DATE: 20220706
